FAERS Safety Report 8064467-2 (Version None)
Quarter: 2012Q1

REPORT INFORMATION
  Report Type: 
  Country: None (occurrence: None)
  Receive Date: 20120123
  Receipt Date: 20120119
  Transmission Date: 20120608
  Serious: Yes (Other)
  Sender: FDA-Public Use
  Company Number: PHEH2011US012718

PATIENT
  Sex: Female
  Weight: 61.224 kg

DRUGS (1)
  1. FANAPT [Suspect]
     Dosage: 6 MG, QD

REACTIONS (3)
  - THYROID FUNCTION TEST ABNORMAL [None]
  - NODULE [None]
  - THYROID DISORDER [None]
